FAERS Safety Report 4603859-8 (Version None)
Quarter: 2005Q1

REPORT INFORMATION
  Report Type: 
  Country: None (occurrence: None)
  Receive Date: 20050308
  Receipt Date: 20050222
  Transmission Date: 20050727
  Serious: Yes (Other)
  Sender: FDA-Public Use
  Company Number: 8009109

PATIENT
  Age: 76 Year
  Sex: Female

DRUGS (3)
  1. KEPPRA [Suspect]
     Indication: CONVULSION
     Dosage: 250 MG ONCE PO
     Route: 048
     Dates: start: 20050218, end: 20050218
  2. KEPPRA [Suspect]
     Indication: CONVULSION
     Dosage: 250 MG 2/D PO
     Route: 048
     Dates: start: 20050219, end: 20050221
  3. UNSPECIFIED MEDICATIONS [Concomitant]

REACTIONS (2)
  - APHASIA [None]
  - CATATONIA [None]
